FAERS Safety Report 5137297-9 (Version None)
Quarter: 2006Q4

REPORT INFORMATION
  Report Type: 
  Country: None (occurrence: None)
  Receive Date: 20061030
  Receipt Date: 20051006
  Transmission Date: 20070319
  Serious: No
  Sender: FDA-Public Use
  Company Number: US-GLAXOSMITHKLINE-A0577344A

PATIENT
  Age: 29 Year
  Sex: Male

DRUGS (11)
  1. ADVAIR HFA [Suspect]
     Indication: ASTHMA
     Route: 055
     Dates: start: 20020101
  2. ALBUTEROL [Concomitant]
  3. PLEXION [Concomitant]
  4. CLINDAMYCIN [Concomitant]
  5. CLONAZEPAM [Concomitant]
  6. LAMICTAL [Concomitant]
  7. ZANTAC [Concomitant]
  8. ANALGESIC [Concomitant]
  9. ZOLOFT [Concomitant]
  10. RISPERDAL [Concomitant]
  11. SUBOXONE [Concomitant]

REACTIONS (3)
  - ACNE [None]
  - CHEILITIS [None]
  - DRY MOUTH [None]
